FAERS Safety Report 7526095-4 (Version None)
Quarter: 2011Q2

REPORT INFORMATION
  Report Type: 
  Country: None (occurrence: None)
  Receive Date: 20110606
  Receipt Date: 20110601
  Transmission Date: 20111010
  Serious: Yes (Other)
  Sender: FDA-Public Use
  Company Number: IE-MERCK-1106GBR00004

PATIENT
  Age: 6 Year
  Sex: Male

DRUGS (3)
  1. BECLOMETHASONE DIPROPIONATE [Concomitant]
     Indication: ASTHMA
     Route: 055
  2. SINGULAIR [Suspect]
     Indication: ASTHMA
     Route: 048
  3. ALBUTEROL [Concomitant]
     Indication: ASTHMA
     Route: 055

REACTIONS (3)
  - PSYCHOMOTOR HYPERACTIVITY [None]
  - ABNORMAL BEHAVIOUR [None]
  - IRRITABILITY [None]
